FAERS Safety Report 25866310 (Version 4)
Quarter: 2025Q4

REPORT INFORMATION
  Report Type: Spontaneous
  Country: EU (occurrence: EU)
  Receive Date: 20250930
  Receipt Date: 20251230
  Transmission Date: 20260117
  Serious: Yes (Death, Life-Threatening, Hospitalization, Other)
  Sender: MYLAN
  Company Number: EU-SANDOZ-SDZ2025ES065739

PATIENT
  Age: 76 Year
  Sex: Male

DRUGS (11)
  1. GABAPENTIN [Suspect]
     Active Substance: GABAPENTIN
     Indication: Product used for unknown indication
     Dosage: 300 MILLIGRAM, Q8H (EVERYEIGHT HOURS)
  2. QUETIAPINE [Suspect]
     Active Substance: QUETIAPINE
     Indication: Antipsychotic therapy
     Dosage: 25 MILLIGRAM, BID (TWICE DAILY) (50 MG, QD)
  3. RISPERIDONE [Suspect]
     Active Substance: RISPERIDONE
     Indication: Product used for unknown indication
     Dosage: UNK
  4. DULOXETINE HYDROCHLORIDE [Suspect]
     Active Substance: DULOXETINE HYDROCHLORIDE
     Indication: Product used for unknown indication
     Dosage: 30 MILLIGRAM, QD (DAILY)
  5. LORMETAZEPAM [Suspect]
     Active Substance: LORMETAZEPAM
     Indication: Product used for unknown indication
     Dosage: 2 MILLIGRAM, QD (AT BEDTIME)
  6. DIAZEPAM [Suspect]
     Active Substance: DIAZEPAM
     Indication: Product used for unknown indication
     Dosage: 5 MILLIGRAM, QD
  7. TRAZODONE [Suspect]
     Active Substance: TRAZODONE HYDROCHLORIDE
     Indication: Product used for unknown indication
     Dosage: 50 MILLIGRAM, QD
  8. ACETAMINOPHEN [Suspect]
     Active Substance: ACETAMINOPHEN
     Indication: Body temperature
     Dosage: UNK
  9. METAMIZOLE [Suspect]
     Active Substance: METAMIZOLE
     Indication: Product used for unknown indication
     Dosage: UNK
  10. BROMOCRIPTINE [Concomitant]
     Active Substance: BROMOCRIPTINE
     Indication: Product used for unknown indication
     Dosage: UNK
  11. DANTROLENE [Concomitant]
     Active Substance: DANTROLENE
     Indication: Product used for unknown indication
     Dosage: UNK

REACTIONS (13)
  - Circulatory collapse [Fatal]
  - Acute kidney injury [Fatal]
  - Neuroleptic malignant syndrome [Fatal]
  - Hypoxia [Fatal]
  - Haemodynamic instability [Fatal]
  - Cardiac arrest [Fatal]
  - Renal impairment [Fatal]
  - Hypernatraemia [Fatal]
  - Hypokalaemia [Fatal]
  - Renal failure [Fatal]
  - Hypocalcaemia [Fatal]
  - Multi-organ disorder [Fatal]
  - Drug interaction [Fatal]

NARRATIVE: CASE EVENT DATE: 20250101
